FAERS Safety Report 6144789-2 (Version None)
Quarter: 2009Q2

REPORT INFORMATION
  Report Type: 
  Country: None (occurrence: None)
  Receive Date: 20090401
  Receipt Date: 20090401
  Transmission Date: 20091009
  Serious: Yes (Other)
  Sender: FDA-Public Use
  Company Number: None

PATIENT
  Age: 18 Year
  Sex: Female
  Weight: 45.3597 kg

DRUGS (1)
  1. CLARIVIS 40MG BARR [Suspect]
     Indication: ACNE CYSTIC
     Dosage: 40MG ONCE DAILY PO
     Route: 048
     Dates: start: 20090306, end: 20090326

REACTIONS (7)
  - ERYTHEMA [None]
  - LIP BLISTER [None]
  - LIP SWELLING [None]
  - SCAB [None]
  - SWELLING FACE [None]
  - WOUND HAEMORRHAGE [None]
  - WOUND SECRETION [None]
